FAERS Safety Report 12249193 (Version 1)
Quarter: 2016Q2

REPORT INFORMATION
  Report Type: Spontaneous
  Country: FR (occurrence: FR)
  Receive Date: 20160408
  Receipt Date: 20160408
  Transmission Date: 20160815
  Serious: Yes (Hospitalization)
  Sender: FDA-Public Use
  Company Number: FR-009507513-1604FRA004948

PATIENT
  Age: 91 Year
  Sex: Female

DRUGS (4)
  1. LASILIX [Concomitant]
     Active Substance: FUROSEMIDE
  2. KEYTRUDA [Suspect]
     Active Substance: PEMBROLIZUMAB
     Indication: METASTATIC MALIGNANT MELANOMA
     Dosage: 1 CYCLE
     Route: 042
     Dates: start: 20150214, end: 20160212
  3. BISOPROLOL FUMARATE. [Concomitant]
     Active Substance: BISOPROLOL FUMARATE
  4. XARELTO [Concomitant]
     Active Substance: RIVAROXABAN

REACTIONS (2)
  - Organising pneumonia [Not Recovered/Not Resolved]
  - Dyspnoea [Not Recovered/Not Resolved]

NARRATIVE: CASE EVENT DATE: 20151216
